FAERS Safety Report 8527673 (Version 3)
Quarter: 2012Q4

REPORT INFORMATION
  Report Type: Report from Study
  Country: US (occurrence: US)
  Receive Date: 20120424
  Receipt Date: 20121120
  Transmission Date: 20130627
  Serious: Yes (Hospitalization, Other)
  Sender: FDA-Public Use
  Company Number: US-ABBOTT-12P-163-0927296-00

PATIENT
  Age: 69 None
  Sex: Female
  Weight: 120.31 kg

DRUGS (2)
  1. HUMIRA 40 MG/ 0.8 ML PRE-FILLED SYRINGE [Suspect]
     Indication: RHEUMATOID ARTHRITIS
     Route: 058
     Dates: start: 200906, end: 20120414
  2. PLAQUENIL [Concomitant]
     Indication: PAIN MANAGEMENT

REACTIONS (26)
  - Chronic myeloid leukaemia [Unknown]
  - Respiratory distress [Unknown]
  - Wound [Recovered/Resolved]
  - Staphylococcal infection [Unknown]
  - Lung infiltration [Unknown]
  - Device related infection [Unknown]
  - Urinary tract infection enterococcal [Unknown]
  - Pleural effusion [Unknown]
  - Pneumonia [Unknown]
  - Drug eruption [Unknown]
  - Drug hypersensitivity [Unknown]
  - Fluid overload [Unknown]
  - Pleural effusion [Unknown]
  - Breakthrough pain [Unknown]
  - Deep vein thrombosis [Unknown]
  - Peritoneal haemorrhage [Unknown]
  - Anaemia [Unknown]
  - Retroperitoneal haemorrhage [Unknown]
  - Sedation [Unknown]
  - Pulmonary hypertension [Unknown]
  - Pickwickian syndrome [Unknown]
  - Inferior vena cava dilatation [Unknown]
  - Hyperuricaemia [Unknown]
  - Blood creatinine increased [Recovered/Resolved]
  - Hyperbilirubinaemia [Unknown]
  - Hyponatraemia [Recovered/Resolved]
